FAERS Safety Report 6999851-9 (Version None)
Quarter: 2010Q3

REPORT INFORMATION
  Report Type: 
  Country: None (occurrence: None)
  Receive Date: 20100920
  Receipt Date: 20070430
  Transmission Date: 20110219
  Serious: Yes (Other)
  Sender: FDA-Public Use
  Company Number: US-ASTRAZENECA-2006UW23266

PATIENT
  Age: 38 Year
  Sex: Male
  Weight: 78.5 kg

DRUGS (11)
  1. SEROQUEL [Suspect]
     Indication: INSOMNIA
     Route: 048
     Dates: start: 20041116
  2. SEROQUEL [Suspect]
     Dosage: 25 MG - 600 MG
     Route: 048
     Dates: start: 20041201, end: 20050101
  3. CELEBREX [Concomitant]
     Route: 048
     Dates: start: 20020826
  4. SOMA [Concomitant]
     Dosage: 350 MG-1050 MG AS REQUIRED
     Route: 048
     Dates: start: 19980618
  5. XANAX [Concomitant]
     Dosage: 0.5 MG-1 MG DAILY
     Route: 048
     Dates: start: 20021101
  6. PREVACID [Concomitant]
     Route: 048
     Dates: start: 20050131
  7. ZANTAC [Concomitant]
     Dosage: 150 MG-300 MG DAILY
     Route: 048
     Dates: start: 20040611
  8. ZOLOFT [Concomitant]
     Route: 048
     Dates: start: 20020826
  9. KLONOPIN [Concomitant]
     Dates: start: 20050525
  10. LEXAPRO [Concomitant]
     Dates: start: 20050311
  11. ZOCOR [Concomitant]
     Dates: start: 20050525

REACTIONS (1)
  - PANCREATITIS [None]
